FAERS Safety Report 9223701 (Version 1)
Quarter: 2013Q2

REPORT INFORMATION
  Report Type: Spontaneous
  Country: US (occurrence: US)
  Receive Date: 20130410
  Receipt Date: 20130410
  Transmission Date: 20140414
  Serious: Yes (Disabling, Other)
  Sender: FDA-Public Use
  Company Number: CHPA2013US005711

PATIENT
  Sex: Female

DRUGS (1)
  1. MYOFLEX ANALGESIC CREME [Suspect]
     Dosage: UNK, UNK
     Route: 061

REACTIONS (2)
  - Hearing impaired [Not Recovered/Not Resolved]
  - Ear infection [Not Recovered/Not Resolved]
